FAERS Safety Report 6766884-7 (Version None)
Quarter: 2010Q2

REPORT INFORMATION
  Report Type: 
  Country: None (occurrence: None)
  Receive Date: 20100611
  Receipt Date: 20100604
  Transmission Date: 20101027
  Serious: Yes (Other)
  Sender: FDA-Public Use
  Company Number: US-ALLERGAN-1007027US

PATIENT
  Age: 48 Year
  Sex: Female

DRUGS (1)
  1. LATISSE [Suspect]
     Indication: DRUG USE FOR UNKNOWN INDICATION
     Dosage: UNK

REACTIONS (4)
  - DEPRESSION [None]
  - EYE IRRITATION [None]
  - HEADACHE [None]
  - SKIN HYPERPIGMENTATION [None]
